FAERS Safety Report 11058030 (Version 2)
Quarter: 2015Q2

REPORT INFORMATION
  Report Type: Spontaneous
  Country: JP (occurrence: JP)
  Receive Date: 20150423
  Receipt Date: 20150515
  Transmission Date: 20150821
  Serious: No
  Sender: FDA-Public Use
  Company Number: JP-ROCHE-1567850

PATIENT
  Sex: Female

DRUGS (3)
  1. PACLITAXEL. [Concomitant]
     Active Substance: PACLITAXEL
     Indication: OVARIAN CANCER
     Route: 041
  2. AVASTIN [Suspect]
     Active Substance: BEVACIZUMAB
     Indication: OVARIAN CANCER
     Dosage: DOSAGE IS UNCERTAIN. ?FIVE COURSES
     Route: 041
  3. CARBOPLATIN. [Concomitant]
     Active Substance: CARBOPLATIN
     Indication: OVARIAN CANCER
     Route: 041

REACTIONS (2)
  - Haemangioma [Unknown]
  - Hypertension [Unknown]

NARRATIVE: CASE EVENT DATE: 20150420
